FAERS Safety Report 4349242-4 (Version None)
Quarter: 2004Q2

REPORT INFORMATION
  Report Type: 
  Country: None (occurrence: None)
  Receive Date: 20040415
  Receipt Date: 20040326
  Transmission Date: 20050107
  Serious: Yes (Other)
  Sender: FDA-Public Use
  Company Number: 200408996

PATIENT
  Age: 23 Year
  Sex: Female

DRUGS (1)
  1. GAMMAR-P I.V. [Suspect]
     Dosage: 150 G Q1W IV
     Route: 042
     Dates: start: 20040120

REACTIONS (3)
  - ANTI-HBC ANTIBODY POSITIVE [None]
  - HEPATITIS B SURFACE ANTIGEN POSITIVE [None]
  - SYPHILIS TEST POSITIVE [None]
